FAERS Safety Report 4297208-5 (Version None)
Quarter: 2004Q1

REPORT INFORMATION
  Report Type: 
  Country: None (occurrence: None)
  Receive Date: 20040213
  Receipt Date: 20040204
  Transmission Date: 20041129
  Serious: Yes (Hospitalization)
  Sender: FDA-Public Use
  Company Number: 200310015

PATIENT
  Age: 49 Year
  Sex: Female
  Weight: 54.4316 kg

DRUGS (2)
  1. BOTOX [Suspect]
     Indication: SKIN WRINKLING
     Dosage: NI
     Dates: start: 20001101
  2. BOTOX [Suspect]
     Indication: SKIN WRINKLING
     Dosage: 62 UNITS PRN; IM
     Route: 030
     Dates: start: 20030523

REACTIONS (45)
  - ABASIA [None]
  - ACQUIRED NIGHT BLINDNESS [None]
  - AGITATION [None]
  - AMNESIA [None]
  - ASTHENIA [None]
  - BLOOD GLUCOSE DECREASED [None]
  - CHEST PAIN [None]
  - COLD SWEAT [None]
  - DISORIENTATION [None]
  - DISTURBANCE IN ATTENTION [None]
  - DIZZINESS [None]
  - DRUG INEFFECTIVE [None]
  - DYSPHAGIA [None]
  - DYSPNOEA [None]
  - EAR PAIN [None]
  - EYE PAIN [None]
  - EYE REDNESS [None]
  - FACIAL PAIN [None]
  - FEELING ABNORMAL [None]
  - FEELING COLD [None]
  - HANGOVER [None]
  - HEADACHE [None]
  - HEART RATE DECREASED [None]
  - HEART RATE INCREASED [None]
  - HEART RATE IRREGULAR [None]
  - HYPERHIDROSIS [None]
  - HYPOAESTHESIA [None]
  - IMPAIRED WORK ABILITY [None]
  - MIGRAINE [None]
  - NAUSEA [None]
  - PAIN [None]
  - PAIN IN EXTREMITY [None]
  - PALPITATIONS [None]
  - PARAESTHESIA [None]
  - PERIPHERAL COLDNESS [None]
  - PHOTOPHOBIA [None]
  - PHOTOPSIA [None]
  - POST PROCEDURAL COMPLICATION [None]
  - PULSE PRESSURE DECREASED [None]
  - RESTLESSNESS [None]
  - TACHYCARDIA [None]
  - TINNITUS [None]
  - TREMOR [None]
  - VISION BLURRED [None]
  - VISUAL ACUITY REDUCED [None]
